FAERS Safety Report 8720792 (Version 3)
Quarter: 2012Q4

REPORT INFORMATION
  Report Type: 
  Country: US (occurrence: US)
  Receive Date: 20120813
  Receipt Date: 20121030
  Transmission Date: 20130627
  Serious: Yes (Hospitalization, Other)
  Sender: FDA-Public Use
  Company Number: US-PFIZER INC-2012193943

PATIENT
  Age: 57 Year
  Sex: Female
  Weight: 65.76 kg

DRUGS (8)
  1. LYRICA [Suspect]
     Indication: NEURALGIA
     Dosage: 200 mg, 3x/day
     Route: 048
     Dates: start: 2006
  2. NORCO [Concomitant]
     Dosage: (10/325)
  3. BACLOFEN [Concomitant]
     Dosage: 10 mg, UNK
  4. FLEXERIL [Concomitant]
     Dosage: 10 mg, UNK
  5. DILTIAZEM [Concomitant]
     Dosage: 120 mg, UNK
  6. LOVENOX [Concomitant]
     Dosage: 60 mg, UNK
  7. FLUOXETINE [Concomitant]
     Dosage: 20 mg, UNK
  8. WARFARIN [Concomitant]
     Dosage: UNK

REACTIONS (5)
  - Pneumonia [Recovered/Resolved]
  - Lower limb fracture [Unknown]
  - Ligament sprain [Recovered/Resolved]
  - Tremor [Not Recovered/Not Resolved]
  - Pain [Not Recovered/Not Resolved]
